FAERS Safety Report 24573996 (Version 4)
Quarter: 2024Q4

REPORT INFORMATION
  Report Type: Spontaneous
  Country: DE (occurrence: DE)
  Receive Date: 20241104
  Receipt Date: 20241212
  Transmission Date: 20250115
  Serious: Yes (Hospitalization, Other)
  Sender: UCB
  Company Number: None

PATIENT
  Age: 8 Year
  Sex: Female
  Weight: 29 kg

DRUGS (6)
  1. LEVETIRACETAM [Suspect]
     Active Substance: LEVETIRACETAM
     Indication: Generalised tonic-clonic seizure
     Dosage: UNK
     Dates: start: 2022
  2. LEVETIRACETAM [Suspect]
     Active Substance: LEVETIRACETAM
     Dosage: 700 MILLIGRAM, 2X/DAY (BID)
     Dates: start: 2022
  3. LEVETIRACETAM [Suspect]
     Active Substance: LEVETIRACETAM
     Dosage: ASTATIC PHASES OCCURRED AFTER THE DOSE WAS INCREASED, DUE TO LACK OF SEIZURE CONTROL, IN EARLY 2024
     Dates: start: 2024
  4. LEVETIRACETAM [Suspect]
     Active Substance: LEVETIRACETAM
     Dosage: 100MG/ML INCREASED TO 2X1000MG ASTATIC PHASES OCCURRED AFTER THE DOSE WAS INCREASED, DUE TO LACK OF
     Route: 048
     Dates: start: 2024
  5. MIDAZOLAM [Concomitant]
     Active Substance: MIDAZOLAM
     Indication: Generalised tonic-clonic seizure
     Dosage: UNK
  6. SULTHIAME [Concomitant]
     Active Substance: SULTHIAME
     Indication: Generalised tonic-clonic seizure
     Dosage: UNK

REACTIONS (5)
  - Electroencephalogram abnormal [Recovering/Resolving]
  - Atonic seizures [Recovering/Resolving]
  - Anticonvulsant drug level increased [Unknown]
  - Drug ineffective [Unknown]
  - Off label use [Unknown]

NARRATIVE: CASE EVENT DATE: 20240101
